FAERS Safety Report 5059387-1 (Version None)
Quarter: 2006Q3

REPORT INFORMATION
  Report Type: 
  Country: None (occurrence: None)
  Receive Date: 20060718
  Receipt Date: 20060706
  Transmission Date: 20061208
  Serious: Yes (Hospitalization)
  Sender: FDA-Public Use
  Company Number: 2005BI018978

PATIENT
  Age: 50 Year
  Sex: Female

DRUGS (7)
  1. AVONEX [Suspect]
     Indication: MULTIPLE SCLEROSIS
     Dosage: 30 UG;QW;IM
     Route: 030
     Dates: start: 19980101, end: 20030901
  2. AVONEX [Suspect]
     Indication: MULTIPLE SCLEROSIS
     Dosage: 30 UG;QW;IM
     Route: 030
     Dates: start: 20030901
  3. FLUOXETINE [Concomitant]
  4. TRAMADOL [Concomitant]
  5. TEMAZEPAM [Concomitant]
  6. DIAZEPAM [Concomitant]
  7. BACLOFEN [Concomitant]

REACTIONS (4)
  - ANAEMIA [None]
  - CROHN'S DISEASE [None]
  - INFLAMMATORY BOWEL DISEASE [None]
  - PLATELET COUNT INCREASED [None]
